FAERS Safety Report 4327414-2 (Version None)
Quarter: 2004Q1

REPORT INFORMATION
  Report Type: 
  Country: None (occurrence: None)
  Receive Date: 20040330
  Receipt Date: 20040226
  Transmission Date: 20041129
  Serious: Yes (Other)
  Sender: FDA-Public Use
  Company Number: JP-MERCK-0403USA00140

PATIENT
  Age: 72 Year
  Sex: Male
  Weight: 36 kg

DRUGS (9)
  1. PRIMAXIN [Suspect]
     Indication: LUNG INFECTION
     Route: 042
     Dates: start: 20030602, end: 20030609
  2. PRIMAXIN [Suspect]
     Route: 042
     Dates: start: 20030610, end: 20030610
  3. DEXTROSE [Concomitant]
     Route: 065
     Dates: start: 20030602, end: 20030610
  4. MINERALS (UNSPECIFIED) [Concomitant]
     Route: 065
     Dates: start: 20030531, end: 20030610
  5. NUTRITIONAL SUPPLEMENTS [Concomitant]
     Route: 065
     Dates: start: 20030531
  6. SODIUM CHLORIDE [Concomitant]
     Route: 065
     Dates: start: 20030602, end: 20030609
  7. SODIUM CHLORIDE [Concomitant]
     Route: 065
     Dates: start: 20030610, end: 20030610
  8. VANCOMYCIN [Suspect]
     Indication: LUNG INFECTION
     Route: 042
     Dates: start: 20030602, end: 20030610
  9. VITAMINS (UNSPECIFIED) [Concomitant]
     Route: 065
     Dates: start: 20030531

REACTIONS (6)
  - ALANINE AMINOTRANSFERASE INCREASED [None]
  - ASPARTATE AMINOTRANSFERASE INCREASED [None]
  - BLOOD ALKALINE PHOSPHATASE INCREASED [None]
  - BLOOD LACTATE DEHYDROGENASE INCREASED [None]
  - C-REACTIVE PROTEIN INCREASED [None]
  - HEPATIC FUNCTION ABNORMAL [None]
